FAERS Safety Report 4721401-8 (Version None)
Quarter: 2005Q3

REPORT INFORMATION
  Report Type: 
  Country: None (occurrence: None)
  Receive Date: 20050721
  Receipt Date: 20040810
  Transmission Date: 20060218
  Serious: No
  Sender: FDA-Public Use
  Company Number: US-BRISTOL-MYERS SQUIBB COMPANY-12666368

PATIENT
  Sex: Female

DRUGS (2)
  1. COUMADIN [Suspect]
     Indication: ARRHYTHMIA
     Route: 048
  2. PAXIL [Concomitant]

REACTIONS (4)
  - ERYTHEMA [None]
  - LOWER EXTREMITY MASS [None]
  - OEDEMA PERIPHERAL [None]
  - PAIN IN EXTREMITY [None]
